FAERS Safety Report 8608668-0 (Version None)
Quarter: 2012Q3

REPORT INFORMATION
  Report Type: 
  Country: None (occurrence: None)
  Receive Date: 20120809
  Receipt Date: 20120809
  Transmission Date: 20120928
  Serious: Yes (Hospitalization)
  Sender: FDA-Public Use
  Company Number: None

PATIENT
  Sex: Female

DRUGS (1)
  1. RIBASPHERE [Suspect]
     Indication: HEPATITIS C
     Dosage: 200 MG 2 X DAILY ORALLY
     Route: 048
     Dates: start: 20120426, end: 20120701

REACTIONS (1)
  - HYPERSENSITIVITY [None]
